FAERS Safety Report 6248645-0 (Version None)
Quarter: 2009Q2

REPORT INFORMATION
  Report Type: 
  Country: None (occurrence: None)
  Receive Date: 20090624
  Receipt Date: 20090501
  Transmission Date: 20091009
  Serious: Yes (Other)
  Sender: FDA-Public Use
  Company Number: US-1169516

PATIENT

DRUGS (1)
  1. TRIESENCE [Suspect]
     Dosage: (INTRAOCULAR)
     Route: 031

REACTIONS (1)
  - PSEUDOENDOPHTHALMITIS [None]
